FAERS Safety Report 16960482 (Version 2)
Quarter: 2019Q4

REPORT INFORMATION
  Report Type: Report from Study
  Country: US (occurrence: US)
  Receive Date: 20191025
  Receipt Date: 20191219
  Transmission Date: 20200122
  Serious: Yes (Hospitalization)
  Sender: FDA-Public Use
  Company Number: US-KARYOPHARM-2019KPT000692

PATIENT
  Age: 64 Year
  Sex: Female
  Weight: 62 kg

DRUGS (6)
  1. ONDANSETRON [Concomitant]
     Active Substance: ONDANSETRON
     Indication: NAUSEA
     Dosage: 8 MG, Q8H
     Route: 048
     Dates: start: 20191003
  2. DEXAMETHASONE. [Concomitant]
     Active Substance: DEXAMETHASONE
     Indication: PROPHYLAXIS
     Dosage: 1 MG, BID
     Route: 048
     Dates: start: 20190929, end: 20191003
  3. SELINEXOR [Suspect]
     Active Substance: SELINEXOR
     Dosage: 40 MG, WEEKLY
     Route: 048
     Dates: start: 20191023, end: 20191105
  4. SELINEXOR [Suspect]
     Active Substance: SELINEXOR
     Indication: NON-SMALL CELL LUNG CANCER
     Dosage: 60 MG, WEEKLY
     Route: 048
     Dates: start: 20191001, end: 20191022
  5. DOCETAXEL. [Suspect]
     Active Substance: DOCETAXEL
     Indication: NON-SMALL CELL LUNG CANCER
     Dosage: 75 MG/M2, 1X/3 WEEKS
     Route: 042
     Dates: start: 20191010, end: 20191105
  6. SODIUM CHLORIDE. [Concomitant]
     Active Substance: SODIUM CHLORIDE
     Indication: HYPONATRAEMIA
     Dosage: 1 G, QD
     Route: 048
     Dates: start: 20191010

REACTIONS (2)
  - Dehydration [Not Recovered/Not Resolved]
  - Hyponatraemia [Not Recovered/Not Resolved]

NARRATIVE: CASE EVENT DATE: 20191015
